FAERS Safety Report 12404713 (Version 1)
Quarter: 2016Q2

REPORT INFORMATION
  Report Type: Spontaneous
  Country: JP (occurrence: JP)
  Receive Date: 20160525
  Receipt Date: 20160525
  Transmission Date: 20160815
  Serious: Yes (Hospitalization, Other)
  Sender: FDA-Public Use
  Company Number: PHJP2016JP003849

PATIENT
  Age: 33 Year
  Sex: Male

DRUGS (5)
  1. VOLTAREN [Suspect]
     Active Substance: DICLOFENAC SODIUM
     Indication: INFLUENZA LIKE ILLNESS
     Dosage: 50 MG, QD
     Route: 054
     Dates: start: 20070130, end: 20070202
  2. MEDICON (DEXTROMETHORPHAN HYDROBROMIDE + POTASSIUM CRESOLSULFONATE) [Concomitant]
     Indication: PRODUCT USED FOR UNKNOWN INDICATION
  3. VOLTAREN [Suspect]
     Active Substance: DICLOFENAC SODIUM
     Indication: PYREXIA
  4. CARBOCISTEIN [Concomitant]
     Active Substance: CARBOCYSTEINE
     Indication: RHINORRHOEA
     Dosage: UNK
     Route: 065
  5. VOLTAREN [Suspect]
     Active Substance: DICLOFENAC SODIUM
     Indication: FATIGUE

REACTIONS (18)
  - Mycoplasma infection [Unknown]
  - Eye pain [Unknown]
  - Lip ulceration [Unknown]
  - Dysphagia [Unknown]
  - Corneal erosion [Unknown]
  - Corneal lesion [Unknown]
  - Dry eye [Unknown]
  - Lymphocyte stimulation test positive [Unknown]
  - Pyrexia [Unknown]
  - Oral disorder [Unknown]
  - Stevens-Johnson syndrome [Unknown]
  - Cheilitis [Unknown]
  - Rash [Unknown]
  - Enanthema [Unknown]
  - Oropharyngeal pain [Unknown]
  - Conjunctival hyperaemia [Unknown]
  - Conjunctivitis [Unknown]
  - Oral mucosa erosion [Unknown]

NARRATIVE: CASE EVENT DATE: 20070131
